FAERS Safety Report 7193668-0 (Version None)
Quarter: 2010Q4

REPORT INFORMATION
  Report Type: 
  Country: None (occurrence: None)
  Receive Date: 20101223
  Receipt Date: 20100908
  Transmission Date: 20110411
  Serious: No
  Sender: FDA-Public Use
  Company Number: US-AMGEN-TCS436870

PATIENT

DRUGS (3)
  1. ENBREL [Suspect]
     Indication: PRODUCT USED FOR UNKNOWN INDICATION
  2. ADALIMUMAB [Concomitant]
     Indication: PSORIATIC ARTHROPATHY
     Dosage: 40 MG, Q2WK
     Route: 058
     Dates: start: 20090901
  3. MULTI-VITAMINS [Concomitant]
     Dosage: UNK UNK, QD

REACTIONS (3)
  - HEADACHE [None]
  - NAUSEA [None]
  - RASH [None]
